FAERS Safety Report 14325806 (Version 2)
Quarter: 2018Q1

REPORT INFORMATION
  Report Type: Report from Study
  Country: US (occurrence: US)
  Receive Date: 20171226
  Receipt Date: 20180104
  Transmission Date: 20180509
  Serious: Yes (Death, Hospitalization)
  Sender: FDA-Public Use
  Company Number: US-ACTELION-A-US2017-164474

PATIENT
  Age: 58 Year
  Sex: Female
  Weight: 138 kg

DRUGS (12)
  1. FAMCICLOVIR. [Concomitant]
     Active Substance: FAMCICLOVIR
  2. GABAPENTIN. [Concomitant]
     Active Substance: GABAPENTIN
  3. WARFARIN [Concomitant]
     Active Substance: WARFARIN
  4. FERROUS SULFATE. [Concomitant]
     Active Substance: FERROUS SULFATE
  5. ALLOPURINOL. [Concomitant]
     Active Substance: ALLOPURINOL
  6. ADEMPAS [Concomitant]
     Active Substance: RIOCIGUAT
  7. AMIODARONE [Concomitant]
     Active Substance: AMIODARONE
  8. PANTOPRAZOLE [Concomitant]
     Active Substance: PANTOPRAZOLE
  9. CYCLOBENZAPRINE. [Concomitant]
     Active Substance: CYCLOBENZAPRINE
  10. FLONASE [Concomitant]
     Active Substance: FLUTICASONE PROPIONATE
  11. OPSUMIT [Suspect]
     Active Substance: MACITENTAN
     Indication: PULMONARY ARTERIAL HYPERTENSION
     Dosage: 10 MG, QD
     Route: 048
     Dates: end: 20171217
  12. MONTELUKAST [Concomitant]
     Active Substance: MONTELUKAST SODIUM

REACTIONS (5)
  - Disease progression [Fatal]
  - Renal failure [Unknown]
  - Fluid retention [Unknown]
  - Pulmonary arterial hypertension [Fatal]
  - Cardiac failure congestive [Fatal]
